FAERS Safety Report 4349127-3 (Version None)
Quarter: 2004Q2

REPORT INFORMATION
  Report Type: 
  Country: None (occurrence: None)
  Receive Date: 20040427
  Receipt Date: 20040427
  Transmission Date: 20050107
  Serious: Yes (Death)
  Sender: FDA-Public Use
  Company Number: None

PATIENT
  Sex: Female

DRUGS (2)
  1. ASPARAGINASE 10000 IU/10 ML [Suspect]
     Indication: ACUTE MYELOID LEUKAEMIA
     Dosage: ONCE IV
     Route: 042
     Dates: start: 20040330, end: 20040330
  2. VINCRISTINE [Suspect]
     Indication: ACUTE MYELOID LEUKAEMIA
     Dosage: 2 MG ONCE SQ
     Route: 058
     Dates: start: 20040330, end: 20040330

REACTIONS (5)
  - GASTROINTESTINAL NECROSIS [None]
  - HYPOTENSION [None]
  - LACTIC ACIDOSIS [None]
  - PANCREATITIS [None]
  - THROMBOCYTOPENIA [None]
